FAERS Safety Report 18305042 (Version 2)
Quarter: 2020Q4

REPORT INFORMATION
  Report Type: Spontaneous
  Country: US (occurrence: US)
  Receive Date: 20200924
  Receipt Date: 20201005
  Transmission Date: 20210113
  Serious: No
  Sender: FDA-Public Use
  Company Number: US-SA-2020SA261875

PATIENT

DRUGS (1)
  1. DUPIXENT [Suspect]
     Active Substance: DUPILUMAB
     Dosage: 600 MG, 1X, LOADING DOSE

REACTIONS (3)
  - Eczema [Recovering/Resolving]
  - Rash [Not Recovered/Not Resolved]
  - Off label use [Unknown]
